FAERS Safety Report 12999781 (Version 2)
Quarter: 2016Q4

REPORT INFORMATION
  Report Type: Spontaneous
  Country: None (occurrence: DE)
  Receive Date: 20161205
  Receipt Date: 20161223
  Transmission Date: 20170207
  Serious: Yes (Hospitalization)
  Sender: FDA-Public Use
  Company Number: DE-MERZ NORTH AMERICA, INC.-16MRZ-00683

PATIENT
  Sex: Female
  Weight: 54 kg

DRUGS (2)
  1. XEOMIN [Suspect]
     Active Substance: INCOBOTULINUMTOXINA
     Indication: SKIN WRINKLING
     Dosage: (1 IN 1 TOTAL)
  2. VISTABEL [Concomitant]
     Active Substance: BOTULINUM TOXIN TYPE A
     Dosage: APPROXIMATELY 9 MONTHS AGO  ?(1 IN 1 TOTAL)

REACTIONS (3)
  - Ear infection [Recovering/Resolving]
  - Diarrhoea [Unknown]
  - Arrhythmia [Recovering/Resolving]
